FAERS Safety Report 8520877-8 (Version None)
Quarter: 2012Q3

REPORT INFORMATION
  Report Type: 
  Country: None (occurrence: None)
  Receive Date: 20120719
  Receipt Date: 20120710
  Transmission Date: 20120928
  Serious: Yes (Other)
  Sender: FDA-Public Use
  Company Number: CA-JNJFOC-20120705773

PATIENT
  Sex: Female
  Weight: 86 kg

DRUGS (1)
  1. REMICADE [Suspect]
     Indication: COLITIS
     Dosage: DOSE: 400 (UNITS UNSPECIFIED) ONCE IN 6-8 WEEKS; 41 INFUSIONS TILL DATE
     Route: 042

REACTIONS (1)
  - CELLULITIS [None]
